FAERS Safety Report 8444010-6 (Version None)
Quarter: 2012Q2

REPORT INFORMATION
  Report Type: 
  Country: None (occurrence: None)
  Receive Date: 20120618
  Receipt Date: 20120612
  Transmission Date: 20120825
  Serious: Yes (Disabling, Other)
  Sender: FDA-Public Use
  Company Number: PHEH2012US005978

PATIENT
  Sex: Female

DRUGS (2)
  1. RECLAST [Suspect]
     Dosage: 5 MG, UNK
     Route: 042
     Dates: start: 20120322
  2. DEMEROL [Concomitant]
     Dosage: 25 MG,  1 PER DAY

REACTIONS (13)
  - SWELLING FACE [None]
  - PAIN IN EXTREMITY [None]
  - FATIGUE [None]
  - FEELING ABNORMAL [None]
  - ARTHRALGIA [None]
  - HYPOKINESIA [None]
  - OEDEMA PERIPHERAL [None]
  - ASTHENIA [None]
  - JOINT SWELLING [None]
  - EYE PAIN [None]
  - VITAMIN D DECREASED [None]
  - PAIN [None]
  - ANGLE CLOSURE GLAUCOMA [None]
